FAERS Safety Report 17721371 (Version 2)
Quarter: 2020Q2

REPORT INFORMATION
  Report Type: Report from Study
  Country: EG (occurrence: EG)
  Receive Date: 20200429
  Receipt Date: 20200518
  Transmission Date: 20200714
  Serious: Yes (Death, Other)
  Sender: FDA-Public Use
  Company Number: EG-REGENERON PHARMACEUTICALS, INC.-2020-34064

PATIENT

DRUGS (1)
  1. EYLEA [Suspect]
     Active Substance: AFLIBERCEPT
     Indication: RETINAL VASCULAR OCCLUSION
     Dosage: LEFT EYE, TOTAL OF 2 EYLEA INJECTIONS WITH 2 DIFFERENT PHYSICIANS (ONE MONTH BETWEEN 2 INJECTIONS)
     Route: 031
     Dates: start: 20191225, end: 202001

REACTIONS (3)
  - Retinal detachment [Unknown]
  - Death [Fatal]
  - Malaise [Unknown]

NARRATIVE: CASE EVENT DATE: 202002
